FAERS Safety Report 9543245 (Version 1)
Quarter: 2013Q3

REPORT INFORMATION
  Report Type: Spontaneous
  Country: BR (occurrence: BR)
  Receive Date: 20130923
  Receipt Date: 20130923
  Transmission Date: 20140515
  Serious: Yes (Hospitalization)
  Sender: FDA-Public Use
  Company Number: BR-IPSEN BIOPHARMACEUTICALS, INC.-2013-4129

PATIENT
  Age: 42 Year
  Sex: Female

DRUGS (6)
  1. DYSPORT [Suspect]
     Indication: SKIN WRINKLING
     Dosage: 129 UNITS
     Route: 030
     Dates: start: 20120911, end: 20120911
  2. DYSPORT [Suspect]
     Indication: SKIN WRINKLING
  3. DYSPORT [Suspect]
     Indication: SKIN COSMETIC PROCEDURE
  4. DYSPORT [Suspect]
     Indication: SKIN WRINKLING
  5. DYSPORT [Suspect]
     Indication: OFF LABEL USE
  6. RESTYLANE [Suspect]
     Indication: SKIN COSMETIC PROCEDURE
     Dosage: NOT REPORTED
     Route: 065
     Dates: start: 20120911, end: 20120911

REACTIONS (3)
  - Cellulitis [Recovering/Resolving]
  - Wrong technique in drug usage process [Unknown]
  - Overdose [Unknown]
